FAERS Safety Report 12990318 (Version 4)
Quarter: 2017Q3

REPORT INFORMATION
  Report Type: Spontaneous
  Country: KR (occurrence: KR)
  Receive Date: 20161201
  Receipt Date: 20170925
  Transmission Date: 20171127
  Serious: Yes (Hospitalization, Other)
  Sender: FDA-Public Use
  Company Number: KR-009507513-1611KOR012825

PATIENT
  Age: 42 Year
  Sex: Male

DRUGS (57)
  1. EMEND (FOSAPREPITANT DIMEGLUMINE) [Suspect]
     Active Substance: FOSAPREPITANT DIMEGLUMINE
     Dosage: 150 MG, ONCE
     Route: 042
     Dates: start: 20160331, end: 20160331
  2. EMEND (FOSAPREPITANT DIMEGLUMINE) [Suspect]
     Active Substance: FOSAPREPITANT DIMEGLUMINE
     Dosage: 150 MG, ONCE
     Route: 042
     Dates: start: 20160525, end: 20160525
  3. DOCETAXEL. [Concomitant]
     Active Substance: DOCETAXEL
     Dosage: 124 MG, ONCE, CYCLE 4
     Route: 042
     Dates: start: 20160525, end: 20160525
  4. DEXAMETHASONE SODIUM PHOSPHATE. [Concomitant]
     Active Substance: DEXAMETHASONE SODIUM PHOSPHATE
     Indication: PROPHYLAXIS OF NAUSEA AND VOMITING
     Dosage: 5 MG, ONCE; STRENGTH: 5MG/ML
     Route: 042
     Dates: start: 20160309, end: 20160309
  5. PLAKON [Concomitant]
     Dosage: 1.5 MG, ONCE; STRENGTH: 3MG/2ML
     Route: 042
     Dates: start: 20160525, end: 20160525
  6. LASIX [Concomitant]
     Active Substance: FUROSEMIDE
     Dosage: 20 MG, ONCE; STRENGTH: 20MG/2ML
     Route: 042
     Dates: start: 20160525, end: 20160525
  7. MAGNESIN (MAGNESIUM SULFATE) [Concomitant]
     Dosage: 2 G, ONCE
     Route: 042
     Dates: start: 20160331, end: 20160331
  8. MAGNESIN (MAGNESIUM SULFATE) [Concomitant]
     Dosage: 2 G, ONCE
     Route: 042
     Dates: start: 20160625, end: 20160625
  9. MACPERAN [Concomitant]
     Active Substance: METOCLOPRAMIDE HYDROCHLORIDE
     Indication: PROPHYLAXIS OF NAUSEA AND VOMITING
     Dosage: 5 MG, TID
     Route: 048
     Dates: start: 20160309, end: 20160313
  10. PARAMACET [Concomitant]
     Active Substance: ACETAMINOPHEN\TRAMADOL
     Indication: PAIN PROPHYLAXIS
     Dosage: 1 TABLET, QID
     Route: 048
     Dates: start: 20160331, end: 20160527
  11. DOCETAXEL. [Concomitant]
     Active Substance: DOCETAXEL
     Dosage: 124 MG, ONCE, CYCLE 2
     Route: 042
     Dates: start: 20160331, end: 20160331
  12. PLAKON [Concomitant]
     Dosage: 1.5 MG, ONCE; STRENGTH: 3MG/2ML
     Route: 042
     Dates: start: 20160503, end: 20160503
  13. LASIX [Concomitant]
     Active Substance: FUROSEMIDE
     Dosage: 20 MG, ONCE; STRENGTH: 20MG/2ML
     Route: 042
     Dates: start: 20160331, end: 20160331
  14. POTASSIUM CHLORIDE. [Concomitant]
     Active Substance: POTASSIUM CHLORIDE
     Dosage: 1 AMPOULE, ONCE
     Route: 042
     Dates: start: 20160503, end: 20160503
  15. MEGESTROL ACETATE. [Concomitant]
     Active Substance: MEGESTROL ACETATE
     Indication: PROPHYLAXIS
     Dosage: 5 ML, DAILY
     Route: 048
     Dates: start: 20160309, end: 20160315
  16. MACPERAN [Concomitant]
     Active Substance: METOCLOPRAMIDE HYDROCHLORIDE
     Dosage: 5 MG, TID
     Route: 048
     Dates: start: 20160331, end: 20160404
  17. CISPLATIN. [Concomitant]
     Active Substance: CISPLATIN
     Indication: BONE NEOPLASM
     Dosage: 135 MG, ONCE, CYCLE 1; STRENGTH: 10MG/20 ML
     Route: 042
     Dates: start: 20160309, end: 20160309
  18. DEXAMETHASONE SODIUM PHOSPHATE. [Concomitant]
     Active Substance: DEXAMETHASONE SODIUM PHOSPHATE
     Dosage: 5 MG, ONCE; STRENGTH: 5MG/ML
     Route: 042
     Dates: start: 20160503, end: 20160503
  19. SANCUSO [Concomitant]
     Active Substance: GRANISETRON
     Dosage: 1 PATCH, ONCE; STRENGTH REPORTED AS ^80.2X66.6MM^2^
     Dates: start: 20160525, end: 20160525
  20. MACPERAN [Concomitant]
     Active Substance: METOCLOPRAMIDE HYDROCHLORIDE
     Indication: PROPHYLAXIS OF NAUSEA AND VOMITING
     Dosage: 10 MG, ONCE
     Route: 042
     Dates: start: 20160309, end: 20160309
  21. THERAPEUTIC RADIOPHARMACEUTICAL (UNSPECIFIED) [Concomitant]
     Active Substance: UNSPECIFIED INGREDIENT
     Indication: PROPHYLAXIS
     Dosage: 1000 ML, ONCE; ROUTE OF ADMINISTRATION REPORTED AS ^GARBLE^
     Dates: start: 20160331, end: 20160331
  22. STILNOX [Concomitant]
     Active Substance: ZOLPIDEM TARTRATE
     Indication: PROPHYLAXIS
     Dosage: 10 MG, DAILY
     Route: 048
     Dates: start: 20160331
  23. EMEND (FOSAPREPITANT DIMEGLUMINE) [Suspect]
     Active Substance: FOSAPREPITANT DIMEGLUMINE
     Indication: PROPHYLAXIS OF NAUSEA AND VOMITING
     Dosage: 150 MG, ONCE
     Route: 042
     Dates: start: 20160309, end: 20160309
  24. CISPLATIN. [Concomitant]
     Active Substance: CISPLATIN
     Dosage: 133 MG, ONCE, CYCLE 3; STRENGTH: 10MG/20 ML
     Route: 042
     Dates: start: 20160503, end: 20160503
  25. DEXAMETHASONE SODIUM PHOSPHATE. [Concomitant]
     Active Substance: DEXAMETHASONE SODIUM PHOSPHATE
     Dosage: 5 MG, ONCE; STRENGTH: 5MG/ML
     Route: 042
     Dates: start: 20160331, end: 20160331
  26. MAGNESIN (MAGNESIUM SULFATE) [Concomitant]
     Dosage: 2 G, ONCE
     Route: 042
     Dates: start: 20160503, end: 20160503
  27. POTASSIUM CHLORIDE. [Concomitant]
     Active Substance: POTASSIUM CHLORIDE
     Dosage: 1 AMPOULE, ONCE
     Route: 042
     Dates: start: 20160525, end: 20160525
  28. MEGESTROL ACETATE. [Concomitant]
     Active Substance: MEGESTROL ACETATE
     Dosage: 5 ML, DAILY
     Route: 048
     Dates: start: 20160504, end: 20160527
  29. ALOXI [Concomitant]
     Active Substance: PALONOSETRON HYDROCHLORIDE
     Dosage: 0.25 MG, ONCE
     Route: 042
     Dates: start: 20160503, end: 20160503
  30. MACPERAN [Concomitant]
     Active Substance: METOCLOPRAMIDE HYDROCHLORIDE
     Dosage: 10 MG, ONCE
     Route: 042
     Dates: start: 20160331, end: 20160331
  31. LASIX [Concomitant]
     Active Substance: FUROSEMIDE
     Dosage: 20 MG, ONCE; STRENGTH: 20MG/2ML
     Route: 042
     Dates: start: 20160503, end: 20160503
  32. POTASSIUM CHLORIDE. [Concomitant]
     Active Substance: POTASSIUM CHLORIDE
     Indication: PROPHYLAXIS
     Dosage: 1 AMPOULE, ONCE; ROUTE REPORTED AS ^SUPPOSITORY^
     Route: 042
     Dates: start: 20160309, end: 20160309
  33. POTASSIUM CHLORIDE. [Concomitant]
     Active Substance: POTASSIUM CHLORIDE
     Dosage: 1 AMPOULE, ONCE
     Route: 042
     Dates: start: 20160331, end: 20160331
  34. MUTERAN [Concomitant]
     Active Substance: ACETYLCYSTEINE
     Indication: PROPHYLAXIS
     Dosage: 200 MG, TID
     Route: 048
     Dates: start: 20160309, end: 20160322
  35. MACPERAN [Concomitant]
     Active Substance: METOCLOPRAMIDE HYDROCHLORIDE
     Dosage: 5 MG, TID
     Route: 048
     Dates: start: 20160504, end: 20160508
  36. LIDOCAINE. [Concomitant]
     Active Substance: LIDOCAINE
     Indication: ANALGESIC THERAPY
     Dosage: 1000 ML, DAILY; ROUTE OF ADMINISTRATION REPORTED AS ^GARBLE^
     Dates: start: 20160331
  37. EMEND (FOSAPREPITANT DIMEGLUMINE) [Suspect]
     Active Substance: FOSAPREPITANT DIMEGLUMINE
     Dosage: 150 MG, ONCE
     Route: 042
     Dates: start: 20160503, end: 20160503
  38. ALOXI [Concomitant]
     Active Substance: PALONOSETRON HYDROCHLORIDE
     Indication: PROPHYLAXIS OF NAUSEA AND VOMITING
     Dosage: 0.25 MG, ONCE
     Route: 042
     Dates: start: 20160309, end: 20160309
  39. SANCUSO [Concomitant]
     Active Substance: GRANISETRON
     Dosage: 34.3 MG, ONCE; STRENGTH REPORTED AS ^80.2X66.6MM^2^
     Dates: start: 20160503, end: 20160503
  40. MEGESTROL ACETATE. [Concomitant]
     Active Substance: MEGESTROL ACETATE
     Dosage: 5 ML, DAILY
     Route: 048
     Dates: start: 20160331, end: 20160407
  41. DOCETAXEL. [Concomitant]
     Active Substance: DOCETAXEL
     Indication: BONE NEOPLASM
     Dosage: 126 MG, ONCE, CYCLE 1
     Route: 042
     Dates: start: 20160309, end: 20160309
  42. DOCETAXEL. [Concomitant]
     Active Substance: DOCETAXEL
     Dosage: 124 MG, ONCE, CYCLE 3
     Route: 042
     Dates: start: 20160503, end: 20160503
  43. SANCUSO [Concomitant]
     Active Substance: GRANISETRON
     Indication: PROPHYLAXIS OF NAUSEA AND VOMITING
     Dosage: 34.3 MG, ONCE; STRENGTH REPORTED AS ^80.2X66.6MM^2^
     Dates: start: 20160331, end: 20160331
  44. MACPERAN [Concomitant]
     Active Substance: METOCLOPRAMIDE HYDROCHLORIDE
     Dosage: 10 MG, ONCE
     Route: 042
     Dates: start: 20160503, end: 20160503
  45. MACPERAN [Concomitant]
     Active Substance: METOCLOPRAMIDE HYDROCHLORIDE
     Dosage: 10 MG, ONCE
     Route: 042
     Dates: start: 20160525, end: 20160525
  46. PLAKON [Concomitant]
     Indication: PROPHYLAXIS OF NAUSEA AND VOMITING
     Dosage: 1.5 MG, ONCE; STRENGTH: 3MG/2ML
     Route: 042
     Dates: start: 20160309, end: 20160309
  47. MAGNESIN (MAGNESIUM SULFATE) [Concomitant]
     Indication: PROPHYLAXIS
     Dosage: 2 G, ONCE
     Route: 042
     Dates: start: 20160309, end: 20160309
  48. ZYPREXA ZYDIS [Concomitant]
     Active Substance: OLANZAPINE
     Indication: PROPHYLAXIS
     Dosage: 5 MG, DAILY
     Route: 048
     Dates: start: 20160309, end: 20160315
  49. ZYPREXA ZYDIS [Concomitant]
     Active Substance: OLANZAPINE
     Dosage: 5 MG, DAILY
     Route: 048
     Dates: start: 20160331
  50. CISPLATIN. [Concomitant]
     Active Substance: CISPLATIN
     Dosage: 133 MG, ONCE, CYCLE 2; STRENGTH: 10MG/20 ML
     Route: 042
     Dates: start: 20160331, end: 20160331
  51. CISPLATIN. [Concomitant]
     Active Substance: CISPLATIN
     Dosage: 133 MG, ONCE, CYCLE 4; STRENGTH: 10MG/20 ML
     Route: 042
     Dates: start: 20160525, end: 20160525
  52. DEXAMETHASONE SODIUM PHOSPHATE. [Concomitant]
     Active Substance: DEXAMETHASONE SODIUM PHOSPHATE
     Dosage: 5 MG, ONCE; STRENGTH: 5MG/ML
     Route: 042
     Dates: start: 20160525, end: 20160525
  53. ALOXI [Concomitant]
     Active Substance: PALONOSETRON HYDROCHLORIDE
     Dosage: 0.25 MG, ONCE
     Route: 042
     Dates: start: 20160331, end: 20160331
  54. ALOXI [Concomitant]
     Active Substance: PALONOSETRON HYDROCHLORIDE
     Dosage: 0.25 MG, ONCE
     Route: 042
     Dates: start: 20160525, end: 20160525
  55. PLAKON [Concomitant]
     Dosage: 1.5 MG, ONCE; STRENGTH: 3MG/2ML
     Route: 042
     Dates: start: 20160331, end: 20160331
  56. LASIX [Concomitant]
     Active Substance: FUROSEMIDE
     Indication: PROPHYLAXIS
     Dosage: 20 MG, ONCE; STRENGTH: 20MG/2ML
     Route: 042
     Dates: start: 20160309, end: 20160309
  57. NEO MEDICOUGH [Concomitant]
     Indication: PROPHYLAXIS
     Dosage: 1 TABLET, TID
     Route: 048
     Dates: start: 20160309, end: 20160322

REACTIONS (4)
  - Pleurodesis [Recovered/Resolved with Sequelae]
  - Sinusitis [Recovered/Resolved]
  - Chest pain [Recovered/Resolved]
  - Chest pain [Recovered/Resolved]

NARRATIVE: CASE EVENT DATE: 201604
